FAERS Safety Report 7916114-5 (Version None)
Quarter: 2011Q4

REPORT INFORMATION
  Report Type: 
  Country: None (occurrence: None)
  Receive Date: 20111116
  Receipt Date: 20111109
  Transmission Date: 20120403
  Serious: Yes (Hospitalization)
  Sender: FDA-Public Use
  Company Number: US-BIOGENIDEC-2011BI019334

PATIENT
  Age: 74 Year
  Sex: Female
  Weight: 56 kg

DRUGS (6)
  1. DIPHENHYDRAMINE-APAP [Concomitant]
     Route: 048
  2. TRAMADOL HCL [Concomitant]
     Route: 048
     Dates: start: 20110204
  3. TYSABRI [Suspect]
     Indication: MULTIPLE SCLEROSIS
     Route: 042
     Dates: start: 20080109
  4. CLOPIDOGREL [Concomitant]
     Route: 048
  5. IBUPROFEN [Concomitant]
  6. LOVASTATIN [Concomitant]
     Route: 048

REACTIONS (1)
  - DECUBITUS ULCER [None]
